FAERS Safety Report 21746348 (Version 1)
Quarter: 2022Q4

REPORT INFORMATION
  Report Type: Report from Study
  Country: US (occurrence: US)
  Receive Date: 20221219
  Receipt Date: 20221219
  Transmission Date: 20230112
  Serious: Yes (Other)
  Sender: FDA-Public Use
  Company Number: US-ABBVIE-4239948

PATIENT
  Sex: Female

DRUGS (1)
  1. HUMIRA [Suspect]
     Active Substance: ADALIMUMAB
     Indication: Hidradenitis
     Dosage: STRENGTH 40 MG
     Route: 058

REACTIONS (5)
  - Skin operation [Not Recovered/Not Resolved]
  - Infection [Not Recovered/Not Resolved]
  - Emotional distress [Unknown]
  - Immunodeficiency [Unknown]
  - Wound [Not Recovered/Not Resolved]
